FAERS Safety Report 7234573-0 (Version None)
Quarter: 2011Q1

REPORT INFORMATION
  Report Type: 
  Country: None (occurrence: None)
  Receive Date: 20110120
  Receipt Date: 20110110
  Transmission Date: 20110831
  Serious: Yes (Other)
  Sender: FDA-Public Use
  Company Number: FR-AMGEN-FRASP2011002471

PATIENT

DRUGS (2)
  1. ENBREL [Suspect]
     Indication: ANKYLOSING SPONDYLITIS
     Dosage: 50 MG, WEEKLY
     Dates: start: 20080201
  2. ENBREL [Suspect]
     Dosage: 50 MG, EVERY 10 DAYS
     Dates: start: 20100601

REACTIONS (3)
  - ANKLE FRACTURE [None]
  - PSEUDARTHROSIS [None]
  - ROAD TRAFFIC ACCIDENT [None]
